FAERS Safety Report 9228343 (Version 2)
Quarter: 2013Q2

REPORT INFORMATION
  Report Type: Report from Study
  Country: US (occurrence: US)
  Receive Date: 20130412
  Receipt Date: 20130509
  Transmission Date: 20140414
  Serious: Yes (Death, Other)
  Sender: FDA-Public Use
  Company Number: US-ROCHE-1213833

PATIENT
  Sex: 0

DRUGS (8)
  1. ALTEPLASE [Suspect]
     Indication: ACUTE MYOCARDIAL INFARCTION
     Dosage: BOLUS INJECTION (15 MG), FOLLOWED BY AN INFUSION OF 0.75 MG/KG (UP TO 50 MG) OVER 30 MINUTES, FOLLOW
     Route: 042
  2. ALTEPLASE [Suspect]
     Dosage: BOLUS INJECTION (15 MG) AND INFUSION OF 0.50 MG/KG (UP TO 35 MG) OVER 60 MINUTES, NOT TO EXCEED A TO
     Route: 042
  3. CANGRELOR [Suspect]
     Indication: ACUTE MYOCARDIAL INFARCTION
     Dosage: INFUSION EITHER 280 UGD/MIN CANGRELOR ALONE; 35, 140, OR 280 UGD/MIN CANGRELOR IN CONJUNCTION WITH
     Route: 042
  4. CANGRELOR [Suspect]
     Dosage: SCHEDULED FOR 24 TO 72 HOURS
     Route: 042
  5. CANGRELOR [Suspect]
     Dosage: SCHEDULED FOR 24 TO 72 HOURS
     Route: 042
  6. ASPIRIN [Suspect]
     Indication: ACUTE MYOCARDIAL INFARCTION
     Route: 048
  7. HEPARIN [Suspect]
     Indication: ACUTE MYOCARDIAL INFARCTION
     Dosage: 60 U/KG UP TO A MAXIMUM OF 4000 U BOLUS FOLLOWED BY 12 U/KG PER HOUR UP TO A MAXIMUM OF 1000 U PER H
     Route: 065
  8. HEPARIN [Suspect]
     Dosage: ADJUSTED TO ACHIEVE AN ACTIVATED CLOTTING TIME (ACT) LEVEL OF 250 TO 300 SECONDS DURING THE PROCEDUR
     Route: 065

REACTIONS (8)
  - Death [Fatal]
  - Graft haemorrhage [Unknown]
  - Haemorrhage [Unknown]
  - Haemorrhage intracranial [Unknown]
  - Acute myocardial infarction [Unknown]
  - Myocardial infarction [Unknown]
  - Coronary revascularisation [Unknown]
  - Haemorrhage [Unknown]
